FAERS Safety Report 10900255 (Version 2)
Quarter: 2015Q2

REPORT INFORMATION
  Report Type: Spontaneous
  Country: GB (occurrence: GB)
  Receive Date: 20150310
  Receipt Date: 20150526
  Transmission Date: 20150821
  Serious: Yes (Death, Other)
  Sender: FDA-Public Use
  Company Number: GB-ACCORD-029107

PATIENT
  Age: 65 Year
  Sex: Female
  Weight: 72 kg

DRUGS (16)
  1. NYSTATIN/NYSTATIN/LIPOSOME [Concomitant]
     Indication: ORAL CANDIDIASIS
     Dosage: 100,000 U/ML
     Route: 048
     Dates: start: 20150114, end: 20150119
  2. QUININE [Concomitant]
     Active Substance: QUININE
     Indication: MUSCLE SPASMS
     Dosage: AT NIGHT
     Dates: start: 20090810, end: 20150122
  3. OMEPRAZOLE. [Concomitant]
     Active Substance: OMEPRAZOLE
     Indication: GASTROOESOPHAGEAL REFLUX DISEASE
     Dates: start: 20090820, end: 20150122
  4. TRIMETHOPRIM/TRIMETHOPRIM LACTATE/TRIMETHOPRIM SULFATE [Concomitant]
     Dates: start: 20141222, end: 20141223
  5. NITROFURANTOIN/NITROFURANTOIN SODIUM [Concomitant]
     Indication: URINARY TRACT INFECTION
     Dates: start: 20141224, end: 20141231
  6. CARBOPLATIN. [Suspect]
     Active Substance: CARBOPLATIN
     Indication: SMALL CELL LUNG CANCER
     Dosage: NOT KNOWN - FIRST DOSE OF COURSE OF CHEMOTHERAPY GIVEN IN HOSPITAL 1ST OF 4 CYCLES.
     Route: 042
     Dates: start: 20150116, end: 20150117
  7. FLUCONAZOLE. [Concomitant]
     Active Substance: FLUCONAZOLE
     Dates: start: 20150119, end: 20150122
  8. LISINOPRIL. [Concomitant]
     Active Substance: LISINOPRIL
     Indication: ESSENTIAL HYPERTENSION
     Dates: start: 20090216, end: 20150122
  9. AMOXICILLIN. [Concomitant]
     Active Substance: AMOXICILLIN
     Indication: LOWER RESPIRATORY TRACT INFECTION
     Dates: start: 20141231, end: 20150106
  10. ORAMORPH SR SUSTAINED RELEASE [Concomitant]
     Active Substance: MORPHINE SULFATE
     Dosage: 2.5 - 5ML WHEN REQUIRED
     Dates: start: 20141231, end: 20150122
  11. DEXAMETHASONE. [Concomitant]
     Active Substance: DEXAMETHASONE
     Dates: end: 20150122
  12. ETOPOSIDE. [Suspect]
     Active Substance: ETOPOSIDE
     Indication: SMALL CELL LUNG CANCER
     Dosage: NOT KNOWN - FIRST DOSE OF COURSE OF CHEMOTHERAPY GIVEN IN HOSPITAL 1ST OF 4TH CYCLES.
     Route: 042
     Dates: start: 20150116, end: 20150117
  13. ZOPICLONE [Concomitant]
     Active Substance: ZOPICLONE
     Dosage: AT NIGHT
     Dates: start: 20100506, end: 20150122
  14. METFORMIN [Concomitant]
     Active Substance: METFORMIN HYDROCHLORIDE
     Indication: TYPE 2 DIABETES MELLITUS
     Dates: start: 20090417, end: 20090422
  15. AMLODIPINE [Concomitant]
     Active Substance: AMLODIPINE BESYLATE
     Indication: ESSENTIAL HYPERTENSION
     Dates: start: 20110801, end: 20150122
  16. ATORVASTATIN [Concomitant]
     Active Substance: ATORVASTATIN
     Dosage: AT NIGHT
     Dates: start: 20090904, end: 20150122

REACTIONS (2)
  - Malaise [Not Recovered/Not Resolved]
  - Leukopenia [Fatal]

NARRATIVE: CASE EVENT DATE: 20140121
